FAERS Safety Report 14303940 (Version 1)
Quarter: 2017Q4

REPORT INFORMATION
  Report Type: Spontaneous
  Country: JP (occurrence: JP)
  Receive Date: 20171219
  Receipt Date: 20171219
  Transmission Date: 20180321
  Serious: Yes (Hospitalization, Other)
  Sender: FDA-Public Use
  Company Number: JP-OTSUKA-JP-2013-15944

PATIENT
  Age: 43 Year
  Sex: Female

DRUGS (3)
  1. ABILIFY [Suspect]
     Active Substance: ARIPIPRAZOLE
     Indication: MANIA
     Dosage: 18 MG, SINGLE
     Route: 048
  2. ESTAZOLAM. [Suspect]
     Active Substance: ESTAZOLAM
     Dosage: 2 MG, QD
     Route: 048
  3. ETIZOLAM [Suspect]
     Active Substance: ETIZOLAM
     Dosage: 2 MG, QD
     Route: 048

REACTIONS (3)
  - Fall [Unknown]
  - Pulmonary embolism [Recovered/Resolved]
  - Loss of consciousness [Unknown]

NARRATIVE: CASE EVENT DATE: 20131210
